FAERS Safety Report 6394320-1 (Version None)
Quarter: 2009Q4

REPORT INFORMATION
  Report Type: 
  Country: None (occurrence: None)
  Receive Date: 20091006
  Receipt Date: 20090930
  Transmission Date: 20100525
  Serious: Yes (Hospitalization)
  Sender: FDA-Public Use
  Company Number: 20096341

PATIENT
  Sex: Male
  Weight: 85 kg

DRUGS (4)
  1. BACLOFEN [Suspect]
     Indication: MUSCLE SPASTICITY
     Dosage: DAILY, INTRATHECAL
     Route: 037
     Dates: start: 20080131
  2. DANTRIUM [Concomitant]
  3. CERCINE [Concomitant]
  4. MYONAL [Concomitant]

REACTIONS (8)
  - DEPRESSED LEVEL OF CONSCIOUSNESS [None]
  - DISEASE RECURRENCE [None]
  - DIZZINESS [None]
  - DRUG EFFECT DECREASED [None]
  - MUSCLE SPASTICITY [None]
  - OVERDOSE [None]
  - PRURITUS [None]
  - SOMNOLENCE [None]
